FAERS Safety Report 7547490-3 (Version None)
Quarter: 2011Q2

REPORT INFORMATION
  Report Type: 
  Country: None (occurrence: None)
  Receive Date: 20110614
  Receipt Date: 20110606
  Transmission Date: 20111010
  Serious: Yes (Hospitalization)
  Sender: FDA-Public Use
  Company Number: US-US-EMD SERONO, INC.-230316M09USA

PATIENT
  Sex: Male
  Weight: 104 kg

DRUGS (3)
  1. REBIF [Suspect]
     Route: 058
     Dates: start: 20090101
  2. REBIF [Suspect]
     Indication: MULTIPLE SCLEROSIS
     Route: 058
     Dates: start: 20090604, end: 20090701
  3. UNSPECIFIED MEDICATIONS [Concomitant]

REACTIONS (3)
  - PNEUMONIA [None]
  - PULMONARY THROMBOSIS [None]
  - RASH [None]
